FAERS Safety Report 20213495 (Version 1)
Quarter: 2021Q4

REPORT INFORMATION
  Report Type: Spontaneous
  Country: US (occurrence: US)
  Receive Date: 20211221
  Receipt Date: 20211221
  Transmission Date: 20220303
  Serious: Yes (Other)
  Sender: FDA-Public Use
  Company Number: US-PFIZER INC-202101789420

PATIENT
  Age: 75 Year
  Sex: Female
  Weight: 55.34 kg

DRUGS (1)
  1. PREGABALIN [Suspect]
     Active Substance: PREGABALIN
     Indication: Neuralgia
     Dosage: HER DOCTOR HAD HER ON TWO A DAY, ONE DURING THE DAY AND ONE AT NIGHT.
     Dates: start: 20211115

REACTIONS (3)
  - Myocardial infarction [Recovered/Resolved]
  - Feeling abnormal [Recovered/Resolved]
  - Insomnia [Recovered/Resolved]

NARRATIVE: CASE EVENT DATE: 20211115
